FAERS Safety Report 4380928-1 (Version None)
Quarter: 2004Q2

REPORT INFORMATION
  Report Type: 
  Country: None (occurrence: None)
  Receive Date: 20040614
  Receipt Date: 20040601
  Transmission Date: 20050107
  Serious: No
  Sender: FDA-Public Use
  Company Number: HQWYE262704JUN04

PATIENT
  Sex: Female

DRUGS (1)
  1. PREMPRO [Suspect]
     Indication: HORMONE REPLACEMENT THERAPY
     Dosage: DOSE UNSPECIFIED, ORAL
     Route: 048
     Dates: start: 19910101, end: 20010101

REACTIONS (3)
  - ASTHMA [None]
  - CEREBROVASCULAR ACCIDENT [None]
  - SYSTEMIC LUPUS ERYTHEMATOSUS [None]
